FAERS Safety Report 9662283 (Version 2)
Quarter: 2013Q4

REPORT INFORMATION
  Report Type: Spontaneous
  Country: US (occurrence: US)
  Receive Date: 20131031
  Receipt Date: 20131031
  Transmission Date: 20140711
  Serious: Yes (Hospitalization)
  Sender: FDA-Public Use
  Company Number: US-TMC-CABO-13003512

PATIENT
  Age: 17 Year
  Sex: Male

DRUGS (7)
  1. COMETRIQ [Suspect]
     Indication: RENAL CANCER
     Dosage: 140 MG, QD
     Route: 048
     Dates: start: 20130926, end: 20131008
  2. ALLOPURINOL [Concomitant]
  3. TESSALON PERLE [Concomitant]
  4. HYDROCHLOROTHIAZIDE [Concomitant]
  5. PREVACID [Concomitant]
  6. OXYCODONE [Concomitant]
  7. CARAFATE [Concomitant]

REACTIONS (3)
  - Haemoptysis [Not Recovered/Not Resolved]
  - Dyspnoea [Recovered/Resolved]
  - Off label use [Unknown]
